FAERS Safety Report 5116660-6 (Version None)
Quarter: 2006Q3

REPORT INFORMATION
  Report Type: 
  Country: None (occurrence: None)
  Receive Date: 20060928
  Receipt Date: 20060821
  Transmission Date: 20061208
  Serious: Yes (Life-Threatening)
  Sender: FDA-Public Use
  Company Number: 459390

PATIENT
  Age: 79 Year
  Sex: Male

DRUGS (10)
  1. CARVEDILOL [Suspect]
     Indication: CARDIAC FAILURE CHRONIC
     Route: 048
     Dates: start: 20060701, end: 20060710
  2. DIOVAN [Concomitant]
     Dates: start: 20060518, end: 20060714
  3. LASIX [Concomitant]
     Dates: start: 20060105, end: 20060714
  4. ALDACTONE [Concomitant]
     Dates: start: 20020620, end: 20060714
  5. ASPIRIN [Concomitant]
     Dates: start: 20020620, end: 20060714
  6. DIGOXIN [Concomitant]
     Dates: start: 20020620, end: 20060714
  7. FLUITRAN [Concomitant]
     Dates: start: 20060518, end: 20060714
  8. GASTER D [Concomitant]
     Dates: start: 20020620, end: 20060714
  9. MAGNESIUM OXIDE [Concomitant]
     Dates: start: 20020620, end: 20060714
  10. PURSENNID [Concomitant]
     Dates: start: 20020620, end: 20060714

REACTIONS (6)
  - APHASIA [None]
  - DEPRESSED LEVEL OF CONSCIOUSNESS [None]
  - HEADACHE [None]
  - HICCUPS [None]
  - INAPPROPRIATE ANTIDIURETIC HORMONE SECRETION [None]
  - MALAISE [None]
